FAERS Safety Report 11777634 (Version 7)
Quarter: 2016Q4

REPORT INFORMATION
  Report Type: Spontaneous
  Country: US (occurrence: US)
  Receive Date: 20151125
  Receipt Date: 20161004
  Transmission Date: 20170206
  Serious: Yes (Death, Hospitalization)
  Sender: FDA-Public Use
  Company Number: US-JNJFOC-20151122535

PATIENT
  Age: 71 Year
  Sex: Female
  Weight: 64.86 kg

DRUGS (4)
  1. DOXIL [Suspect]
     Active Substance: DOXORUBICIN HYDROCHLORIDE
     Indication: PLASMA CELL MYELOMA
     Route: 042
     Dates: start: 20151008, end: 20151008
  2. DOXIL [Suspect]
     Active Substance: DOXORUBICIN HYDROCHLORIDE
     Indication: PLASMA CELL MYELOMA
     Dosage: 2 CYCLES
     Route: 042
     Dates: start: 20150911, end: 20151008
  3. VINCRISTINE [Suspect]
     Active Substance: VINCRISTINE
     Indication: PLASMA CELL MYELOMA
     Dosage: 2 CYCLES
     Route: 042
     Dates: start: 20150911, end: 20151008
  4. DEXAMETHASONE. [Suspect]
     Active Substance: DEXAMETHASONE
     Indication: PLASMA CELL MYELOMA
     Dosage: DAYS 1-4 OF 28 DAY CYCLE
     Route: 048
     Dates: start: 20150911, end: 20151011

REACTIONS (5)
  - Thrombocytopenia [Not Recovered/Not Resolved]
  - Fall [Fatal]
  - Acute kidney injury [Fatal]
  - Subdural haematoma [Fatal]
  - Post procedural sepsis [Not Recovered/Not Resolved]

NARRATIVE: CASE EVENT DATE: 20151026
